FAERS Safety Report 7498744-0 (Version None)
Quarter: 2011Q2

REPORT INFORMATION
  Report Type: 
  Country: None (occurrence: None)
  Receive Date: 20110524
  Receipt Date: 20110512
  Transmission Date: 20111010
  Serious: Yes (Other)
  Sender: FDA-Public Use
  Company Number: CA-ELI_LILLY_AND_COMPANY-CA201105003310

PATIENT
  Sex: Male
  Weight: 103.6 kg

DRUGS (20)
  1. ZYPREXA [Suspect]
     Dosage: 12.5 MG, EACH EVENING
  2. WELLBUTRIN [Concomitant]
  3. COGENTIN [Concomitant]
  4. CHLORPROMAZINE [Concomitant]
  5. ZYPREXA [Suspect]
     Dosage: 7.5 MG, EACH EVENING
  6. ZYPREXA [Suspect]
     Dosage: 15 MG, EACH EVENING
  7. PILOCARPINE [Concomitant]
  8. ZYPREXA [Suspect]
     Indication: SCHIZOPHRENIA
     Dosage: 20 MG, EACH EVENING
  9. ZYPREXA [Suspect]
     Dosage: 5 MG, EACH EVENING
  10. DIAZEPAM [Concomitant]
  11. TEMAZ [Concomitant]
  12. VALPROATE SODIUM [Concomitant]
  13. LITHIUM CARBONATE [Concomitant]
  14. IMIPRAMINE [Concomitant]
  15. ZOPICLONE [Concomitant]
  16. VALPROIC ACID [Concomitant]
  17. ZOLOFT [Concomitant]
  18. ZYPREXA [Suspect]
     Dosage: 10 MG, EACH EVENING
  19. ZYPREXA [Suspect]
     Dosage: 2.5 MG, EACH EVENING
  20. RISPERDAL [Concomitant]

REACTIONS (10)
  - RENAL FAILURE [None]
  - CEREBROVASCULAR DISORDER [None]
  - BLOOD TRIGLYCERIDES INCREASED [None]
  - NEUROLEPTIC MALIGNANT SYNDROME [None]
  - WEIGHT INCREASED [None]
  - HYPERTENSION [None]
  - PERIPHERAL VASCULAR DISORDER [None]
  - HYPERGLYCAEMIA [None]
  - DEPRESSED LEVEL OF CONSCIOUSNESS [None]
  - HYPERCHOLESTEROLAEMIA [None]
